FAERS Safety Report 4666482-5 (Version None)
Quarter: 2005Q2

REPORT INFORMATION
  Report Type: 
  Country: None (occurrence: None)
  Receive Date: 20050519
  Receipt Date: 20050512
  Transmission Date: 20051028
  Serious: Yes (Death, Other)
  Sender: FDA-Public Use
  Company Number: GB-BRISTOL-MYERS SQUIBB COMPANY-12965067

PATIENT
  Age: 62 Year
  Sex: Male
  Weight: 90 kg

DRUGS (4)
  1. ACETYLSALICYLIC ACID [Suspect]
     Route: 048
  2. ATENOLOL [Suspect]
     Route: 048
  3. EFFEXOR XR [Suspect]
     Route: 048
  4. OLANZAPINE [Suspect]
     Route: 048

REACTIONS (3)
  - COMPLETED SUICIDE [None]
  - INTENTIONAL MISUSE [None]
  - SUICIDAL IDEATION [None]
